FAERS Safety Report 11804790 (Version 4)
Quarter: 2016Q1

REPORT INFORMATION
  Report Type: Spontaneous
  Country: US (occurrence: US)
  Receive Date: 20151205
  Receipt Date: 20160302
  Transmission Date: 20160525
  Serious: Yes (Other)
  Sender: FDA-Public Use
  Company Number: US-TEVA-614151ACC

PATIENT
  Age: 24 Year
  Sex: Female
  Weight: 59.02 kg

DRUGS (1)
  1. PARAGARD T 380A [Suspect]
     Active Substance: COPPER
     Indication: CONTRACEPTION
     Route: 015
     Dates: start: 201307

REACTIONS (9)
  - Vaginal discharge [Recovered/Resolved]
  - Menorrhagia [Recovering/Resolving]
  - Large intestinal ulcer [Unknown]
  - Vaginal infection [Recovered/Resolved]
  - Haematochezia [Recovered/Resolved]
  - Uterine perforation [Recovered/Resolved]
  - Device dislocation [Unknown]
  - Fungal infection [Recovered/Resolved]
  - Anaemia [Recovered/Resolved]

NARRATIVE: CASE EVENT DATE: 201308
